FAERS Safety Report 22124127 (Version 1)
Quarter: 2023Q1

REPORT INFORMATION
  Report Type: Report from Study
  Country: CA (occurrence: CA)
  Receive Date: 20230322
  Receipt Date: 20230322
  Transmission Date: 20230418
  Serious: Yes (Death)
  Sender: FDA-Public Use
  Company Number: CA-002147023-NVSC2023CA065640

PATIENT
  Sex: Female

DRUGS (1)
  1. FULVESTRANT [Suspect]
     Active Substance: FULVESTRANT
     Indication: Product used for unknown indication
     Dosage: 250 MG (250/5 MG/ML) (0, 14, 28 DAYS)
     Route: 065
     Dates: start: 20210301

REACTIONS (1)
  - Death [Fatal]
